FAERS Safety Report 17810100 (Version 2)
Quarter: 2020Q2

REPORT INFORMATION
  Report Type: Spontaneous
  Country: AU (occurrence: AU)
  Receive Date: 20200520
  Receipt Date: 20200624
  Transmission Date: 20200714
  Serious: Yes (Life-Threatening, Hospitalization)
  Sender: FDA-Public Use
  Company Number: AU-ELI_LILLY_AND_COMPANY-AU202005002397

PATIENT
  Age: 64 Year
  Sex: Male

DRUGS (3)
  1. ZYPREXA RELPREVV [Suspect]
     Active Substance: OLANZAPINE PAMOATE
     Indication: PRODUCT USED FOR UNKNOWN INDICATION
     Dosage: 300 MG, 2/W (LONG TERM TREATMENT FOR APPROXIMATELY 12 MONTHS)
     Route: 065
     Dates: start: 201906
  2. ZYPREXA RELPREVV [Suspect]
     Active Substance: OLANZAPINE PAMOATE
     Indication: PRODUCT USED FOR UNKNOWN INDICATION
     Dosage: 300 MG, 2/W (LONG TERM TREATMENT FOR APPROXIMATELY 12 MONTHS)
     Route: 065
     Dates: start: 201906
  3. ZYPREXA RELPREVV [Suspect]
     Active Substance: OLANZAPINE PAMOATE
     Indication: PRODUCT USED FOR UNKNOWN INDICATION
     Dosage: 300 MG, 2/W (LONG TERM TREATMENT FOR APPROXIMATELY 12 MONTHS)
     Route: 065
     Dates: start: 201906

REACTIONS (3)
  - Coma scale abnormal [Recovered/Resolved]
  - Vomiting [Recovered/Resolved]
  - Post-injection delirium sedation syndrome [Recovered/Resolved]

NARRATIVE: CASE EVENT DATE: 20200430
